FAERS Safety Report 7245127-4 (Version None)
Quarter: 2011Q1

REPORT INFORMATION
  Report Type: 
  Country: None (occurrence: None)
  Receive Date: 20110126
  Receipt Date: 20110117
  Transmission Date: 20110831
  Serious: Yes (Other)
  Sender: FDA-Public Use
  Company Number: IT-SANOFI-AVENTIS-2011SA003195

PATIENT
  Age: 70 Year
  Sex: Female

DRUGS (4)
  1. DIURETICS [Concomitant]
  2. MULTAQ [Suspect]
     Route: 065
  3. DICUMAROL [Concomitant]
  4. ANGIOTENSIN II ANTAGONISTS [Concomitant]

REACTIONS (1)
  - CHOLESTASIS [None]
